FAERS Safety Report 10497601 (Version 1)
Quarter: 2014Q4

REPORT INFORMATION
  Report Type: Spontaneous
  Country: US (occurrence: None)
  Receive Date: 20141002
  Receipt Date: 20141002
  Transmission Date: 20150528
  Serious: Yes (Other)
  Sender: FDA-Public Use
  Company Number: 201409110

PATIENT
  Age: 59 Year
  Sex: Male

DRUGS (2)
  1. ANDROGEL [Suspect]
     Active Substance: TESTOSTERONE
     Route: 061
     Dates: start: 20120726
  2. TESTIM [Suspect]
     Active Substance: TESTOSTERONE
     Route: 062
     Dates: start: 20120430, end: 20120726

REACTIONS (6)
  - Economic problem [None]
  - Deep vein thrombosis [None]
  - Fear [None]
  - Chest pain [None]
  - Anhedonia [None]
  - Pain in extremity [None]

NARRATIVE: CASE EVENT DATE: 20120921
